FAERS Safety Report 8960311 (Version 1)
Quarter: 2012Q4

REPORT INFORMATION
  Report Type: 
  Country: US (occurrence: US)
  Receive Date: 20121211
  Receipt Date: 20121211
  Transmission Date: 20130627
  Serious: Yes (Other)
  Sender: FDA-Public Use
  Company Number: US-PFIZER INC-2012310042

PATIENT
  Age: 51 Year
  Sex: Female
  Weight: 59.86 kg

DRUGS (7)
  1. LYRICA [Suspect]
     Indication: FIBROMYALGIA
     Dosage: 150 mg, 2x/day
     Route: 048
  2. MONTELUKAST [Concomitant]
     Dosage: 10 mg, 1x/day
  3. ZETIA [Concomitant]
     Dosage: 10 mg, UNK
  4. FLUOXETINE [Concomitant]
     Dosage: UNK
  5. TRAZODONE [Concomitant]
     Dosage: 15 mg, 1x/day
  6. AMITRIPTYLINE [Concomitant]
     Dosage: 50 mg, 1x/day
  7. DOXEPIN [Concomitant]
     Dosage: 100 mg, UNK

REACTIONS (4)
  - Activities of daily living impaired [Unknown]
  - Blood cholesterol abnormal [Unknown]
  - Pain [Unknown]
  - Drug ineffective [Unknown]
